FAERS Safety Report 8566687 (Version 6)
Quarter: 2013Q1

REPORT INFORMATION
  Report Type: Spontaneous
  Country: US (occurrence: US)
  Receive Date: 20120517
  Receipt Date: 20130329
  Transmission Date: 20140127
  Serious: Yes (Hospitalization)
  Sender: FDA-Public Use
  Company Number: US-B.I. PHARMACEUTICALS,INC./RIDGEFIELD-2012-BP-10679BP

PATIENT
  Age: 81 Year
  Sex: Female
  Weight: 78.47 kg

DRUGS (18)
  1. PRADAXA [Suspect]
     Indication: ATRIAL FIBRILLATION
     Dosage: 300 MG
     Route: 048
     Dates: start: 201109
  2. FUROSEMIDE [Concomitant]
     Dosage: 40 MG
     Route: 048
     Dates: start: 200308
  3. HYDROCODONE-ACETAMINOPHEN [Concomitant]
     Route: 048
  4. LISINOPRIL [Concomitant]
     Dosage: 10 MG
     Route: 048
     Dates: start: 200312
  5. METOPROLOL TARTRATE [Concomitant]
     Dosage: 100 MG
     Route: 048
     Dates: start: 200702
  6. POTASSIUM CHLORIDE [Concomitant]
     Dosage: 20 MEQ
     Route: 048
     Dates: start: 201005
  7. SIMVASTATIN [Concomitant]
     Dosage: 20 MG
     Route: 048
     Dates: start: 200704
  8. ZOLPIDEM TARTRATE [Concomitant]
     Route: 048
  9. ASPIRIN [Concomitant]
     Dosage: 325 MG
     Route: 048
  10. CEFUROXIME AXETIL [Concomitant]
     Dosage: 1000 MG
     Route: 048
  11. CLONIDINE HCL CD [Concomitant]
     Dosage: 0.6 MG
     Route: 048
     Dates: start: 200908
  12. DILTIAZEM HCL [Concomitant]
     Dosage: 120 MG
     Route: 048
  13. INSULIN ISOPHANE (HUMAN) [Concomitant]
     Dosage: 25 U
     Route: 058
  14. INSULIN ISOPHANE (HUMAN) [Concomitant]
     Dosage: 30 U
     Route: 058
  15. IPRATROPLU/ALBUTEROL 18/90MCG [Concomitant]
     Dosage: 8 PUF
     Route: 055
  16. SACCHAROMYCES BOULARDIL [Concomitant]
     Dosage: 500 MG
     Route: 048
  17. HUMULIN [Concomitant]
     Dates: start: 199708
  18. AMLODIPINE [Concomitant]
     Dates: start: 200705

REACTIONS (1)
  - Gastrointestinal haemorrhage [Unknown]
